FAERS Safety Report 5307586-3 (Version None)
Quarter: 2007Q2

REPORT INFORMATION
  Report Type: 
  Country: None (occurrence: None)
  Receive Date: 20070425
  Receipt Date: 20070423
  Transmission Date: 20071010
  Serious: Yes (Hospitalization)
  Sender: FDA-Public Use
  Company Number: FR-BRISTOL-MYERS SQUIBB COMPANY-13757315

PATIENT
  Age: 78 Year
  Sex: Male

DRUGS (5)
  1. LOPRIL [Suspect]
     Route: 048
  2. LOPRIL [Suspect]
     Route: 048
  3. GLUCOPHAGE [Suspect]
     Route: 048
  4. HYDROCORTISONE [Suspect]
     Route: 048
  5. TROPATEPINE [Suspect]
     Route: 048

REACTIONS (3)
  - DEHYDRATION [None]
  - HYPONATRAEMIA [None]
  - PYREXIA [None]
